FAERS Safety Report 14483679 (Version 6)
Quarter: 2019Q3

REPORT INFORMATION
  Report Type: Spontaneous
  Country: JP (occurrence: JP)
  Receive Date: 20180205
  Receipt Date: 20190716
  Transmission Date: 20191004
  Serious: Yes (Life-Threatening, Hospitalization, Other)
  Sender: FDA-Public Use
  Company Number: JP-009507513-1711JPN002082J

PATIENT
  Age: 62 Year
  Sex: Male
  Weight: 49 kg

DRUGS (8)
  1. NEXIUM [Suspect]
     Active Substance: ESOMEPRAZOLE MAGNESIUM
     Indication: PROPHYLAXIS AGAINST GASTROINTESTINAL ULCER
     Dosage: 20 MG, QD
     Route: 048
     Dates: start: 20170906, end: 20171117
  2. KEYTRUDA [Suspect]
     Active Substance: PEMBROLIZUMAB
     Indication: LUNG SQUAMOUS CELL CARCINOMA STAGE IV
     Dosage: 200 MG, Q3W
     Route: 041
     Dates: start: 20170912, end: 20171026
  3. OXYCONTIN [Suspect]
     Active Substance: OXYCODONE HYDROCHLORIDE
     Indication: PAIN MANAGEMENT
     Dosage: 20 MG, BID
     Route: 048
     Dates: start: 20170906, end: 20171117
  4. KAYEXALATE [Suspect]
     Active Substance: SODIUM POLYSTYRENE SULFONATE
     Indication: HYPERKALAEMIA
     Dosage: 2 DF, TID
     Route: 048
     Dates: start: 20170926, end: 20171117
  5. SENNOSIDE [Suspect]
     Active Substance: SENNOSIDES
     Indication: CONSTIPATION
     Dosage: 24 MG, QD
     Route: 048
     Dates: start: 20170906, end: 20171117
  6. MAGMITT [Suspect]
     Active Substance: MAGNESIUM OXIDE
     Indication: CONSTIPATION
     Dosage: 500 MG, TID
     Route: 048
     Dates: start: 20170906, end: 20171117
  7. CALONAL [Suspect]
     Active Substance: ACETAMINOPHEN
     Indication: PAIN MANAGEMENT
     Dosage: 1 G, QID
     Route: 048
     Dates: start: 20171004, end: 20171117
  8. RISPERDAL [Suspect]
     Active Substance: RISPERIDONE
     Indication: INSOMNIA
     Dosage: 0.5 MG, QD
     Route: 048
     Dates: start: 20170915, end: 20171117

REACTIONS (3)
  - Malignant ascites [Unknown]
  - Hepatic encephalopathy [Unknown]
  - Hepatitis fulminant [Recovered/Resolved]

NARRATIVE: CASE EVENT DATE: 20171115
